FAERS Safety Report 7528401-3 (Version None)
Quarter: 2011Q2

REPORT INFORMATION
  Report Type: 
  Country: None (occurrence: None)
  Receive Date: 20110607
  Receipt Date: 20110103
  Transmission Date: 20111010
  Serious: No
  Sender: FDA-Public Use
  Company Number: US-ASTRAZENECA-2011SE03088

PATIENT
  Sex: Female

DRUGS (3)
  1. DIAZEPAM [Concomitant]
     Dosage: UNKNOWN
  2. PRILOSEC OTC [Suspect]
     Indication: ULCER
     Route: 048
     Dates: start: 20101227, end: 20101231
  3. PRILOSEC OTC [Suspect]
     Indication: HIATUS HERNIA
     Route: 048
     Dates: start: 20101227, end: 20101231

REACTIONS (7)
  - CHEST DISCOMFORT [None]
  - ABDOMINAL DISCOMFORT [None]
  - ABDOMINAL PAIN UPPER [None]
  - NAUSEA [None]
  - HYPERHIDROSIS [None]
  - FEELING ABNORMAL [None]
  - CHEST PAIN [None]
